FAERS Safety Report 18572990 (Version 1)
Quarter: 2020Q4

REPORT INFORMATION
  Report Type: Spontaneous
  Country: US (occurrence: US)
  Receive Date: 20201203
  Receipt Date: 20201203
  Transmission Date: 20210114
  Serious: No
  Sender: FDA-Public Use
  Company Number: US-NEUROCRINE BIOSCIENCES INC.-2020NBI04276

PATIENT
  Sex: Female

DRUGS (1)
  1. ONGENTYS [Suspect]
     Active Substance: OPICAPONE
     Indication: PARKINSON^S DISEASE
     Dosage: AT NIGHT
     Route: 048

REACTIONS (3)
  - Drug ineffective [Unknown]
  - Dyskinesia [Unknown]
  - Parkinson^s disease [Unknown]
